FAERS Safety Report 9370324 (Version 1)
Quarter: 2013Q2

REPORT INFORMATION
  Report Type: Spontaneous
  Country: BR (occurrence: BR)
  Receive Date: 20130626
  Receipt Date: 20130626
  Transmission Date: 20140414
  Serious: Yes (Other)
  Sender: FDA-Public Use
  Company Number: BR-ASTRAZENECA-2013SE47782

PATIENT
  Age: 817 Month
  Sex: Male
  Weight: 70 kg

DRUGS (4)
  1. CANDESARTAN CILEXETIL [Suspect]
     Indication: HYPERTENSION
     Dosage: GENERIC, 8 MG DAILY
     Dates: start: 2011
  2. HYDROCHLOROTHIAZIDE [Suspect]
     Dates: start: 2011
  3. OMEPRAZOLE [Suspect]
     Indication: GASTRITIS
     Dosage: GENERIC, TWO TIMES A DAY
     Route: 048
     Dates: start: 201305
  4. SIMVASTATIN [Concomitant]
     Indication: BLOOD CHOLESTEROL ABNORMAL
     Dates: start: 201304

REACTIONS (6)
  - Carotid artery occlusion [Not Recovered/Not Resolved]
  - Transient ischaemic attack [Recovered/Resolved]
  - Gastritis [Unknown]
  - Chest pain [Unknown]
  - Musculoskeletal pain [Unknown]
  - Intentional drug misuse [Unknown]
